FAERS Safety Report 18666025 (Version 4)
Quarter: 2024Q1

REPORT INFORMATION
  Report Type: Spontaneous
  Country: AT (occurrence: AT)
  Receive Date: 20201226
  Receipt Date: 20240301
  Transmission Date: 20240410
  Serious: Yes (Other)
  Sender: FDA-Public Use
  Company Number: AT-AMGEN-AUTNI2019097207

PATIENT
  Age: 51 Year
  Sex: Female
  Weight: 72 kg

DRUGS (21)
  1. ARANESP [Suspect]
     Active Substance: DARBEPOETIN ALFA
     Indication: Product used for unknown indication
     Dosage: UNK (ONGOING = CHECKED)
     Route: 065
     Dates: start: 20170711
  2. NEULASTA [Suspect]
     Active Substance: PEGFILGRASTIM
     Indication: Product used for unknown indication
     Dosage: UNK (ONGOING = CHECKED)
     Route: 065
     Dates: start: 20170711
  3. HERCEPTIN [Suspect]
     Active Substance: TRASTUZUMAB
     Indication: HER2 positive breast cancer
     Dosage: 6 MILLIGRAM/KILOGRAM, Q3WK
     Route: 042
     Dates: start: 20170912, end: 20200121
  4. HERCEPTIN [Suspect]
     Active Substance: TRASTUZUMAB
     Indication: Breast cancer
  5. PERJETA [Suspect]
     Active Substance: PERTUZUMAB
     Indication: HER2 positive breast cancer
     Dosage: 420 MILLIGRAM, Q3WK (MOST RECENT DOSE PRIOR TO THE EVENT: 29/MAY/2018)
     Route: 042
     Dates: start: 20170912, end: 20171023
  6. PARAPLATIN [Suspect]
     Active Substance: CARBOPLATIN
     Indication: HER2 positive breast cancer
     Dosage: 528 MILLIGRAM, Q3WK
     Route: 042
     Dates: start: 20170912, end: 20171023
  7. TAXOTERE [Suspect]
     Active Substance: DOCETAXEL
     Indication: HER2 positive breast cancer
     Dosage: 109 MILLIGRAM, Q3WK
     Route: 042
     Dates: start: 20170912, end: 20171023
  8. CYTOXAN [Suspect]
     Active Substance: CYCLOPHOSPHAMIDE
     Indication: HER2 positive breast cancer
     Dosage: 500 MILLIGRAM/SQ. METER, Q3WK (MOST RECENT DOSE PRIOR TO THE EVENT: 10/JUL/2018)
     Route: 042
     Dates: start: 20180529
  9. ADRUCIL [Suspect]
     Active Substance: FLUOROURACIL
     Indication: HER2 positive breast cancer
     Dosage: 500 MILLIGRAM, Q3WK
     Route: 042
     Dates: start: 20180529
  10. EFUDEX [Suspect]
     Active Substance: FLUOROURACIL
     Indication: HER2 positive breast cancer
     Dosage: 500 MICROGRAM/SQ. METER, Q3WK
     Route: 042
     Dates: start: 20180529
  11. FLUOROPLEX [Suspect]
     Active Substance: FLUOROURACIL
     Indication: HER2 positive breast cancer
     Dosage: 500 MILLIGRAM/SQ. METER, Q3WK
     Route: 042
     Dates: start: 20180529
  12. ELLENCE [Suspect]
     Active Substance: EPIRUBICIN HYDROCHLORIDE
     Indication: HER2 positive breast cancer
     Dosage: 100 MILLIGRAM/SQ. METER, Q3WK
     Route: 042
     Dates: start: 20180529
  13. DOLOPHINE [Concomitant]
     Active Substance: METHADONE HYDROCHLORIDE
     Dosage: UNK (ONGOING = CHECKED)
     Route: 065
  14. ZOFRAN [Concomitant]
     Active Substance: ONDANSETRON HYDROCHLORIDE
     Dosage: UNK
     Route: 065
     Dates: start: 20170611
  15. EMEND [Concomitant]
     Active Substance: APREPITANT
     Dosage: UNK
     Route: 065
     Dates: start: 20170711
  16. DEXAMETHASONE [Concomitant]
     Active Substance: DEXAMETHASONE
     Dosage: UNK
     Route: 065
     Dates: start: 20170711
  17. ACETYLCYSTEINE [Concomitant]
     Active Substance: ACETYLCYSTEINE
     Indication: Respiratory tract infection
     Dosage: UNK (ONGOING = NOT CHECKED)
     Dates: start: 20230915, end: 20230915
  18. LYRICA [Concomitant]
     Active Substance: PREGABALIN
     Indication: Neuropathy peripheral
     Dosage: UNK
     Dates: start: 20180829, end: 20190226
  19. Hysan [Concomitant]
     Indication: Rhinitis
     Dosage: UNK
     Dates: start: 20190226, end: 20190305
  20. Baneocin [Concomitant]
     Indication: Rhinitis
     Dosage: UNK
     Dates: start: 20190226, end: 20190305
  21. PULMICORT TURBUHALER [Concomitant]
     Active Substance: BUDESONIDE
     Indication: Respiratory tract infection
     Dosage: UNK
     Dates: start: 20190319, end: 20190326

REACTIONS (7)
  - Respiratory tract infection [Recovered/Resolved]
  - Thrombocytopenia [Recovered/Resolved]
  - Neuropathy peripheral [Unknown]
  - Off label use [Unknown]
  - Breast pain [Recovered/Resolved]
  - Herpes zoster [Recovered/Resolved]
  - Rhinitis [Recovered/Resolved]

NARRATIVE: CASE EVENT DATE: 20180605
